FAERS Safety Report 25252081 (Version 1)
Quarter: 2025Q2

REPORT INFORMATION
  Report Type: Spontaneous
  Country: FR (occurrence: FR)
  Receive Date: 20250429
  Receipt Date: 20250429
  Transmission Date: 20250717
  Serious: Yes (Hospitalization)
  Sender: MYLAN
  Company Number: None

PATIENT
  Age: 25 Year
  Sex: Female

DRUGS (7)
  1. TRAMADOL [Suspect]
     Active Substance: TRAMADOL
     Indication: Product used for unknown indication
     Dates: start: 20250227, end: 20250227
  2. BROMAZEPAM [Suspect]
     Active Substance: BROMAZEPAM
     Indication: Product used for unknown indication
     Dates: start: 20250227, end: 20250227
  3. SERTRALINE [Suspect]
     Active Substance: SERTRALINE HYDROCHLORIDE
     Indication: Product used for unknown indication
     Dates: start: 20250227, end: 20250227
  4. LORMETAZEPAM [Suspect]
     Active Substance: LORMETAZEPAM
     Indication: Product used for unknown indication
     Dates: start: 20250227, end: 20250227
  5. ALPRAZOLAM [Suspect]
     Active Substance: ALPRAZOLAM
     Indication: Product used for unknown indication
     Dates: start: 20250227, end: 20250227
  6. OXAZEPAM [Suspect]
     Active Substance: OXAZEPAM
     Indication: Product used for unknown indication
     Dates: start: 20250227, end: 20250227
  7. AMITRIPTYLINE [Suspect]
     Active Substance: AMITRIPTYLINE
     Indication: Product used for unknown indication
     Dates: start: 20250227, end: 20250227

REACTIONS (4)
  - Poisoning deliberate [Recovered/Resolved]
  - Salivary hyposecretion [Recovered/Resolved]
  - Somnolence [Recovered/Resolved]
  - Intentional overdose [Unknown]

NARRATIVE: CASE EVENT DATE: 20250227
